FAERS Safety Report 16141423 (Version 1)
Quarter: 2019Q2

REPORT INFORMATION
  Report Type: Spontaneous
  Country: US (occurrence: US)
  Receive Date: 20190331
  Receipt Date: 20190331
  Transmission Date: 20190711
  Serious: Yes (Hospitalization)
  Sender: FDA-Public Use
  Company Number: None

PATIENT
  Age: 65 Year
  Sex: Female
  Weight: 72.1 kg

DRUGS (2)
  1. ESTRADIOL. [Suspect]
     Active Substance: ESTRADIOL
     Indication: MENOPAUSE
     Route: 048
     Dates: end: 20181119
  2. ESTRADIOL. [Suspect]
     Active Substance: ESTRADIOL
     Indication: HOT FLUSH
     Route: 048
     Dates: end: 20181119

REACTIONS (4)
  - Pulmonary embolism [None]
  - Respiratory failure [None]
  - Ankle fracture [None]
  - Syncope [None]

NARRATIVE: CASE EVENT DATE: 20181119
